FAERS Safety Report 7664915-3 (Version None)
Quarter: 2011Q3

REPORT INFORMATION
  Report Type: 
  Country: None (occurrence: None)
  Receive Date: 20110806
  Receipt Date: 20110203
  Transmission Date: 20111222
  Serious: No
  Sender: FDA-Public Use
  Company Number: US-ABBOTT-11P-163-0703632-00

PATIENT
  Sex: Male
  Weight: 70.37 kg

DRUGS (9)
  1. NIASPAN [Suspect]
     Indication: HIGH DENSITY LIPOPROTEIN DECREASED
     Dates: start: 20100901, end: 20101214
  2. NIASPAN [Suspect]
     Dates: start: 20101215
  3. ZOCOR [Concomitant]
     Indication: HIGH DENSITY LIPOPROTEIN DECREASED
  4. NOVOLOG [Concomitant]
     Indication: DIABETES MELLITUS
  5. RAMIPRIL [Concomitant]
     Indication: HYPERTENSION
  6. PROZAC [Concomitant]
     Indication: DEPRESSION
  7. ASPIRIN [Concomitant]
     Indication: THROMBOSIS PROPHYLAXIS
  8. FINASTERIDE [Concomitant]
     Indication: PRODUCT USED FOR UNKNOWN INDICATION
  9. LEVAMIRE FLEXPEN [Concomitant]
     Indication: DIABETES MELLITUS

REACTIONS (1)
  - BLOOD GLUCOSE INCREASED [None]
